FAERS Safety Report 4317214-1 (Version None)
Quarter: 2004Q1

REPORT INFORMATION
  Report Type: 
  Country: None (occurrence: None)
  Receive Date: 20040308
  Receipt Date: 20040218
  Transmission Date: 20041129
  Serious: Yes (Death)
  Sender: FDA-Public Use
  Company Number: 234443

PATIENT
  Age: 52 Year
  Sex: Male
  Weight: 50 kg

DRUGS (7)
  1. NOVOSEVEN [Suspect]
     Indication: HAEMORRHAGE
     Dosage: 90 UG/KG X 2 DOSES - 1 HR APART, INTRAVENOUS
     Route: 042
     Dates: start: 20031211, end: 20031211
  2. TISSEEL KIT (ALBUMIN HUMAN, APROTININ, CALCIUM CHLORIDE DIHYDRATE, FAC [Concomitant]
  3. RED BLOOD CELLS [Concomitant]
  4. PLASMA [Concomitant]
  5. APROTININ (APROTININ) [Concomitant]
  6. PLATELETS [Concomitant]
  7. AMICAR (AMINOCARPROIC ACID) [Concomitant]

REACTIONS (2)
  - INTRACARDIAC THROMBUS [None]
  - THROMBOSIS [None]
